FAERS Safety Report 4773743-8 (Version None)
Quarter: 2005Q3

REPORT INFORMATION
  Report Type: 
  Country: None (occurrence: None)
  Receive Date: 20050920
  Receipt Date: 20030214
  Transmission Date: 20060218
  Serious: Yes (Hospitalization)
  Sender: FDA-Public Use
  Company Number: PHBS2003BE01889

PATIENT
  Age: 37 Year
  Sex: Male

DRUGS (5)
  1. AREDIA [Suspect]
     Dosage: 30 MG, QD
     Dates: start: 20030128, end: 20030129
  2. AREDIA [Suspect]
     Dosage: 30 MG, QD
     Dates: start: 20030203, end: 20030203
  3. AREDIA [Suspect]
     Dosage: 30 MG, QD
     Dates: start: 20030206, end: 20030207
  4. TRAMADOL HCL [Concomitant]
     Indication: ARTHRALGIA
     Dosage: MAXIMAL 25 MG/D
     Route: 065
  5. LORAZEPAM [Concomitant]

REACTIONS (38)
  - ASTHENIA [None]
  - ATRIOVENTRICULAR BLOCK [None]
  - BLOOD CREATINE PHOSPHOKINASE INCREASED [None]
  - BUNDLE BRANCH BLOCK LEFT [None]
  - CARDIAC FAILURE CONGESTIVE [None]
  - CEREBROVASCULAR ACCIDENT [None]
  - CHEST PAIN [None]
  - CONJUNCTIVAL HYPERAEMIA [None]
  - DYSARTHRIA [None]
  - DYSPNOEA [None]
  - DYSPNOEA AT REST [None]
  - DYSPNOEA PAROXYSMAL NOCTURNAL [None]
  - EJECTION FRACTION DECREASED [None]
  - ELECTROENCEPHALOGRAM ABNORMAL [None]
  - EPISCLERITIS [None]
  - HEMIPLEGIA TRANSIENT [None]
  - HYPERHIDROSIS [None]
  - HYPERTENSION [None]
  - HYPOAESTHESIA [None]
  - INFLUENZA LIKE ILLNESS [None]
  - LEFT VENTRICULAR FAILURE [None]
  - LOSS OF CONSCIOUSNESS [None]
  - LYMPHADENOPATHY [None]
  - MOTOR DYSFUNCTION [None]
  - MYALGIA [None]
  - OEDEMA PERIPHERAL [None]
  - PALPITATIONS [None]
  - PARESIS [None]
  - PHOTOPHOBIA [None]
  - PLATELET COUNT DECREASED [None]
  - PULMONARY OEDEMA [None]
  - PYREXIA [None]
  - SUPRAVENTRICULAR EXTRASYSTOLES [None]
  - TRICUSPID VALVE INCOMPETENCE [None]
  - VENTRICULAR DYSFUNCTION [None]
  - VENTRICULAR EXTRASYSTOLES [None]
  - VIRAL MYOCARDITIS [None]
  - WHITE BLOOD CELL COUNT DECREASED [None]
